FAERS Safety Report 13407243 (Version 1)
Quarter: 2017Q2

REPORT INFORMATION
  Report Type: Spontaneous
  Country: US (occurrence: US)
  Receive Date: 20170405
  Receipt Date: 20170405
  Transmission Date: 20170830
  Serious: No
  Sender: FDA-Public Use
  Company Number: US-ACTELION-A-US2017-151783

PATIENT
  Age: 80 Year
  Sex: Male

DRUGS (11)
  1. VALCHLOR [Suspect]
     Active Substance: MECHLORETHAMINE
     Indication: MYCOSIS FUNGOIDES
     Dosage: UNK, QD
     Route: 061
     Dates: start: 20170226
  2. FLONASE [Concomitant]
     Active Substance: FLUTICASONE PROPIONATE
  3. PENICILLIN VK [Concomitant]
     Active Substance: PENICILLIN V POTASSIUM
  4. PROTONIX [Concomitant]
     Active Substance: PANTOPRAZOLE SODIUM
  5. METOPROLOL TARTRATE. [Concomitant]
     Active Substance: METOPROLOL TARTRATE
  6. LISINOPRIL. [Concomitant]
     Active Substance: LISINOPRIL
  7. LEVAQUIN [Concomitant]
     Active Substance: LEVOFLOXACIN
  8. ZITHROMAX [Concomitant]
     Active Substance: AZITHROMYCIN DIHYDRATE
  9. LIPITOR [Concomitant]
     Active Substance: ATORVASTATIN CALCIUM
  10. CLARITIN [Concomitant]
     Active Substance: LORATADINE
  11. TESSALON [Concomitant]
     Active Substance: BENZONATATE

REACTIONS (1)
  - Stomatitis [Unknown]
